FAERS Safety Report 5620076-3 (Version None)
Quarter: 2008Q1

REPORT INFORMATION
  Report Type: 
  Country: None (occurrence: None)
  Receive Date: 20080208
  Receipt Date: 20080204
  Transmission Date: 20080703
  Serious: Yes (Life-Threatening)
  Sender: FDA-Public Use
  Company Number: IT-ASTRAZENECA-2008SE00616

PATIENT
  Sex: Male

DRUGS (1)
  1. PROPOFOL [Suspect]

REACTIONS (2)
  - ACUTE RESPIRATORY FAILURE [None]
  - HEPATITIS ACUTE [None]
